FAERS Safety Report 10276526 (Version 2)
Quarter: 2014Q3

REPORT INFORMATION
  Report Type: Spontaneous
  Country: CH (occurrence: CH)
  Receive Date: 20140703
  Receipt Date: 20140711
  Transmission Date: 20150326
  Serious: Yes (Disabling, Other)
  Sender: FDA-Public Use
  Company Number: CH-PFIZER INC-2014175483

PATIENT
  Age: 18 Year
  Sex: Male
  Weight: 60 kg

DRUGS (21)
  1. VALACYCLOVIR [Concomitant]
     Active Substance: VALACYCLOVIR HYDROCHLORIDE
     Dosage: 500 MG, 2X/DAY
     Route: 048
  2. VORICONAZOLE. [Interacting]
     Active Substance: VORICONAZOLE
     Indication: BRONCHOPULMONARY ASPERGILLOSIS
     Dosage: 250 MG, DAILY
     Route: 048
     Dates: start: 20140214, end: 20140226
  3. VORICONAZOLE. [Interacting]
     Active Substance: VORICONAZOLE
     Dosage: 200 MG, 4X/DAY
     Route: 048
     Dates: start: 20140312, end: 20140328
  4. PARACETAMOL [Concomitant]
     Active Substance: ACETAMINOPHEN
     Dosage: 1 G, 3X/DAY (IN RESERVE)
     Route: 048
  5. CYCLOPHOSPHAMIDE. [Concomitant]
     Active Substance: CYCLOPHOSPHAMIDE
     Indication: BURKITT^S LEUKAEMIA
     Dosage: 580 MG, 2X/DAY (CYCLIC)
     Route: 041
     Dates: start: 20140205
  6. HYDROMORPHONE [Concomitant]
     Active Substance: HYDROMORPHONE
     Dosage: 2 MG, 6X/DAY AND ADDITIONAL 6X/DAY IN RESERVE
     Route: 048
  7. POSACONAZOLE [Interacting]
     Active Substance: POSACONAZOLE
     Dosage: 300 MG, 4X/DAY
     Route: 048
     Dates: start: 20140414
  8. MESNUM [Concomitant]
     Indication: BURKITT^S LEUKAEMIA
     Dosage: 1150 MG, CYCLIC
     Route: 040
     Dates: start: 20140205
  9. CYTARABINE. [Suspect]
     Active Substance: CYTARABINE
     Indication: BURKITT^S LEUKAEMIA
     Dosage: 5300 MG, 2X/DAY (CYCLIC)
     Route: 040
     Dates: start: 20140305
  10. POSACONAZOLE [Interacting]
     Active Substance: POSACONAZOLE
     Dosage: 200 MG, 4X/DAY
     Route: 048
     Dates: start: 20140403, end: 20140413
  11. COTRIMOXAZOLE [Concomitant]
     Active Substance: SULFAMETHOXAZOLE\TRIMETHOPRIM
     Dosage: 3X/WEEK
     Route: 048
  12. POSACONAZOLE [Interacting]
     Active Substance: POSACONAZOLE
     Indication: BRONCHOPULMONARY ASPERGILLOSIS
     Dosage: 200 MG, 3X/DAY
     Route: 048
     Dates: start: 20140328, end: 20140402
  13. DEXAMETHASONE. [Concomitant]
     Active Substance: DEXAMETHASONE
     Indication: BURKITT^S LEUKAEMIA
     Dosage: 40 MG, CYCLIC
     Route: 041
     Dates: start: 20140205
  14. PREDNISONE. [Concomitant]
     Active Substance: PREDNISONE
     Dosage: 20 MG, 1X/DAY
     Route: 048
  15. VINCRISTINE SULFATE. [Suspect]
     Active Substance: VINCRISTINE SULFATE
     Indication: BURKITT^S LEUKAEMIA
     Dosage: 2 MG, CYCLIC
     Route: 041
     Dates: start: 20140208, end: 20140403
  16. FLUCONAZOLE. [Interacting]
     Active Substance: FLUCONAZOLE
     Indication: PROPHYLAXIS
     Dosage: 400 MG, 2X/DAY
     Route: 048
     Dates: start: 20140205, end: 20140214
  17. DOXORUBICIN [Concomitant]
     Active Substance: DOXORUBICIN
     Indication: BURKITT^S LEUKAEMIA
     Dosage: 95 MG, 1X/DAY
     Route: 041
     Dates: start: 20140208
  18. ZOLPIDEM [Concomitant]
     Active Substance: ZOLPIDEM\ZOLPIDEM TARTRATE
     Dosage: 1 MG, 3X/DAY (IN RESERVE)
  19. VORICONAZOLE. [Interacting]
     Active Substance: VORICONAZOLE
     Dosage: 400 MG, 2X/DAY
     Route: 048
     Dates: start: 20140227, end: 20140311
  20. RITUXIMAB [Concomitant]
     Active Substance: RITUXIMAB
     Dosage: 720 MG, CYCLIC
     Route: 041
     Dates: start: 20140205
  21. METHOTREXATE (METHOTREXATE SODIUM) [Concomitant]
     Active Substance: METHOTREXATE SODIUM
     Indication: BURKITT^S LEUKAEMIA
     Dosage: 1870 MG, CYCLIC
     Route: 040
     Dates: start: 20140304

REACTIONS (6)
  - Radiculitis [Not Recovered/Not Resolved]
  - Bronchopulmonary aspergillosis [Unknown]
  - Drug interaction [Unknown]
  - Toxic neuropathy [Not Recovered/Not Resolved]
  - Toxicity to various agents [Not Recovered/Not Resolved]
  - Prescribed overdose [Unknown]

NARRATIVE: CASE EVENT DATE: 20140508
